FAERS Safety Report 26087336 (Version 1)
Quarter: 2025Q4

REPORT INFORMATION
  Report Type: Spontaneous
  Country: US (occurrence: US)
  Receive Date: 20251125
  Receipt Date: 20251125
  Transmission Date: 20260117
  Serious: Yes (Death, Other)
  Sender: AMGEN
  Company Number: US-AMGEN-USASP2025232394

PATIENT

DRUGS (1)
  1. PROLIA [Suspect]
     Active Substance: DENOSUMAB
     Indication: Osteoporosis
     Dosage: UNK
     Route: 065

REACTIONS (6)
  - Death [Fatal]
  - Cerebrovascular accident [Unknown]
  - Myocardial infarction [Unknown]
  - Cardiac failure [Unknown]
  - Hypocalcaemia [Unknown]
  - Fracture [Unknown]
